FAERS Safety Report 6197071-1 (Version None)
Quarter: 2009Q2

REPORT INFORMATION
  Report Type: 
  Country: None (occurrence: None)
  Receive Date: 20090518
  Receipt Date: 20090518
  Transmission Date: 20091009
  Serious: Yes (Disabling, Other)
  Sender: FDA-Public Use
  Company Number: None

PATIENT
  Sex: Female
  Weight: 40.5 kg

DRUGS (1)
  1. RECLAST [Suspect]
     Indication: OSTEOPOROSIS
     Dosage: I V RECLAST ONCE
     Route: 042
     Dates: start: 20090506

REACTIONS (5)
  - ABDOMINAL DISCOMFORT [None]
  - ANOREXIA [None]
  - FATIGUE [None]
  - NAUSEA [None]
  - ORAL PAIN [None]
